FAERS Safety Report 25407700 (Version 4)
Quarter: 2025Q3

REPORT INFORMATION
  Report Type: Spontaneous
  Country: US (occurrence: US)
  Receive Date: 20250606
  Receipt Date: 20250918
  Transmission Date: 20251021
  Serious: Yes (Other)
  Sender: UCB
  Company Number: US-UCBSA-2025014490

PATIENT
  Sex: Female

DRUGS (7)
  1. CIMZIA [Suspect]
     Active Substance: CERTOLIZUMAB PEGOL
     Indication: Rheumatoid arthritis
     Dosage: 400 MILLIGRAM, EV 4 WEEKS
     Route: 058
     Dates: start: 20250317
  2. CIMZIA [Suspect]
     Active Substance: CERTOLIZUMAB PEGOL
     Indication: Psoriatic arthropathy
     Dosage: 200 MILLIGRAM, EV 4 WEEKS
     Route: 058
     Dates: end: 20250519
  3. VITAMIN D3 [Concomitant]
     Active Substance: CHOLECALCIFEROL
     Indication: Product used for unknown indication
  4. CRESTOR [Concomitant]
     Active Substance: ROSUVASTATIN CALCIUM
     Indication: Product used for unknown indication
  5. XLEAR NASAL SPRAY [Concomitant]
     Indication: Product used for unknown indication
  6. PREDNISONE [Concomitant]
     Active Substance: PREDNISONE
     Indication: Product used for unknown indication
     Dates: start: 20250521, end: 20250525
  7. ZOFRAN [Concomitant]
     Active Substance: ONDANSETRON HYDROCHLORIDE
     Indication: Product used for unknown indication
     Dates: start: 20250527

REACTIONS (16)
  - Psoriatic arthropathy [Recovering/Resolving]
  - Rheumatoid arthritis [Recovering/Resolving]
  - Irritable bowel syndrome [Unknown]
  - Constipation [Unknown]
  - Swelling [Unknown]
  - Back pain [Unknown]
  - Gastrooesophageal reflux disease [Recovering/Resolving]
  - Migraine [Unknown]
  - Vomiting [Recovering/Resolving]
  - Chills [Unknown]
  - Hot flush [Recovering/Resolving]
  - Blood pressure increased [Unknown]
  - Insomnia [Unknown]
  - Drug ineffective [Unknown]
  - Product use issue [Unknown]
  - Psoriasis [Unknown]

NARRATIVE: CASE EVENT DATE: 20250101
